FAERS Safety Report 6387320-9 (Version None)
Quarter: 2009Q3

REPORT INFORMATION
  Report Type: 
  Country: None (occurrence: None)
  Receive Date: 20090930
  Receipt Date: 20090914
  Transmission Date: 20100115
  Serious: Yes (Death)
  Sender: FDA-Public Use
  Company Number: 2009AL002554

PATIENT
  Age: 86 Year
  Sex: Female

DRUGS (62)
  1. DIGOXIN [Suspect]
     Dosage: PO
     Route: 048
     Dates: start: 20080328, end: 20080421
  2. ASPIRIN [Concomitant]
  3. PLAVIX [Concomitant]
  4. ARANESP [Concomitant]
  5. PREVACID [Concomitant]
  6. ZYVOX [Concomitant]
  7. DIFLUCAN [Concomitant]
  8. B COMPLEX ELX [Concomitant]
  9. DENAVIR [Concomitant]
  10. HYDROCHLOROTHIAZIDE [Concomitant]
  11. DESONIDE [Concomitant]
  12. CLONIDINE [Concomitant]
  13. PAROXETINE [Concomitant]
  14. VERAPAMIL [Concomitant]
  15. LORAZEPAM [Concomitant]
  16. PRAVACHOL [Concomitant]
  17. PYRIDOXINE [Concomitant]
  18. LEVOBUNOLOL HCL [Concomitant]
  19. ACTONEL [Concomitant]
  20. LIPITOR [Concomitant]
  21. CIPROFLOXACIN HYDROCHLORIDE [Concomitant]
  22. ALTACE [Concomitant]
  23. MIRAPEX [Concomitant]
  24. NEXIUM [Concomitant]
  25. METOPROLOL [Concomitant]
  26. OXYCODONE [Concomitant]
  27. PROPOXY/APAP [Concomitant]
  28. SKELAXIN [Concomitant]
  29. DOXYCYCLINE [Concomitant]
  30. HYCLATE [Concomitant]
  31. ACETAMINOPHEN [Concomitant]
  32. LEVOBUNOLOL HCL [Concomitant]
  33. BLEPHAMIDE [Concomitant]
  34. FOLIC [Concomitant]
  35. AMIODARONE [Concomitant]
  36. LEVOTHYROXINE SODIUM [Concomitant]
  37. AMBIEN [Concomitant]
  38. FERREX [Concomitant]
  39. ZOLOFT [Concomitant]
  40. FUROSEMIDE [Concomitant]
  41. BENICAR [Concomitant]
  42. KLOR-CON [Concomitant]
  43. WARFARIN SODIUM [Concomitant]
  44. CALCITRIOL [Concomitant]
  45. PRAVASTATIN [Concomitant]
  46. NIFEREX [Concomitant]
  47. ZYRTEC [Concomitant]
  48. SONATA [Concomitant]
  49. FORTICAL [Concomitant]
  50. SERTRALINE HCL [Concomitant]
  51. TORSEMIDE [Concomitant]
  52. HYOSCYAMINE [Concomitant]
  53. PROMETHAZINE [Concomitant]
  54. SPIRONOLACTONE [Concomitant]
  55. NEPHRO VITE [Concomitant]
  56. HYDRALAZINE HCL [Concomitant]
  57. COMBIVENT [Concomitant]
  58. ISOSORBIDE [Concomitant]
  59. AZITHROMYCIN [Concomitant]
  60. .. [Concomitant]
  61. .. [Concomitant]
  62. .. [Concomitant]

REACTIONS (11)
  - CANDIDURIA [None]
  - DEHYDRATION [None]
  - DIARRHOEA [None]
  - ECONOMIC PROBLEM [None]
  - ENTEROBACTER INFECTION [None]
  - HYPOTENSION [None]
  - MULTIPLE INJURIES [None]
  - PATHOGEN RESISTANCE [None]
  - STAPHYLOCOCCAL BACTERAEMIA [None]
  - SURGERY [None]
  - VOMITING [None]
